FAERS Safety Report 22339912 (Version 8)
Quarter: 2023Q4

REPORT INFORMATION
  Report Type: Spontaneous
  Country: CN (occurrence: CN)
  Receive Date: 20230518
  Receipt Date: 20231218
  Transmission Date: 20240109
  Serious: Yes (Death, Hospitalization)
  Sender: FDA-Public Use
  Company Number: CN-Merck Healthcare KGaA-9400826

PATIENT
  Age: 66 Year
  Sex: Male
  Weight: 61 kg

DRUGS (32)
  1. ERBITUX [Suspect]
     Active Substance: CETUXIMAB
     Indication: Hypopharyngeal cancer
     Dosage: 700 MG, WEEKLY (1/W)  (LOADING DOSE)
     Route: 042
     Dates: start: 20230324, end: 20230324
  2. ERBITUX [Suspect]
     Active Substance: CETUXIMAB
     Dosage: 440 MG, WEEKLY (1/W)
     Route: 042
     Dates: start: 20230324, end: 20230421
  3. ERBITUX [Suspect]
     Active Substance: CETUXIMAB
     Dosage: 220 MG, WEEKLY (1/W)
     Route: 042
     Dates: start: 20230427
  4. PIPERACILLIN AND TAZOBACTAM [Suspect]
     Active Substance: PIPERACILLIN SODIUM\TAZOBACTAM SODIUM
     Indication: Infection
     Dosage: 6.75 G, UNKNOWN
     Route: 065
     Dates: end: 20230403
  5. OXYCODONE AND ACETAMINOPHEN [Concomitant]
     Active Substance: ACETAMINOPHEN\OXYCODONE HYDROCHLORIDE
     Indication: Product used for unknown indication
     Dosage: 20 MG
     Dates: start: 20230307, end: 20230324
  6. OXYCODONE AND ACETAMINOPHEN [Concomitant]
     Active Substance: ACETAMINOPHEN\OXYCODONE HYDROCHLORIDE
     Dosage: 15 MG
     Dates: start: 20230303, end: 20230804
  7. OXYCODONE HYDROCHLORIDE [Concomitant]
     Active Substance: OXYCODONE HYDROCHLORIDE
     Indication: Product used for unknown indication
     Dosage: UNK
     Dates: start: 20230306, end: 20230327
  8. CARBAMAZEPINE [Concomitant]
     Active Substance: CARBAMAZEPINE
     Indication: Pain
     Dosage: 0.6 MG
     Dates: start: 20230307, end: 20230325
  9. METOPROLOL TARTRATE [Concomitant]
     Active Substance: METOPROLOL TARTRATE
     Indication: Heart rate increased
     Dosage: 25 MG, UNK
     Dates: start: 20230323, end: 20230323
  10. CIMETIDINE [Concomitant]
     Active Substance: CIMETIDINE
     Indication: Gastrointestinal disorder
     Dosage: .3 G, UNK
     Dates: start: 20230324, end: 20230326
  11. GLUCOSE AND CALCIUM CHLORIDE [Concomitant]
     Indication: Dehydration
     Dosage: 500 ML
     Dates: start: 20230304, end: 20230324
  12. ASCORBIC ACID [Concomitant]
     Active Substance: ASCORBIC ACID
     Indication: Dehydration
     Dosage: 1 G, UNK
     Dates: start: 20230324, end: 20230324
  13. VITAMIN B6 [Concomitant]
     Active Substance: PYRIDOXINE HYDROCHLORIDE
     Indication: Dehydration
     Dosage: .6 G, UNK
     Dates: start: 20230324, end: 20230326
  14. DIPHENHYDRAMINE HYDROCHLORIDE [Concomitant]
     Active Substance: DIPHENHYDRAMINE HYDROCHLORIDE
     Indication: Prophylaxis
     Dosage: 50 MG, UNK
     Dates: start: 20230324, end: 20230324
  15. ORNIDAZOLE [Concomitant]
     Active Substance: ORNIDAZOLE
     Indication: Infection
     Dosage: 1 G, UNK
     Dates: start: 20230325, end: 20230326
  16. METRONIDAZOLE [Concomitant]
     Active Substance: METRONIDAZOLE
     Indication: Infection
     Dosage: .6 G, UNK
     Dates: start: 20230326, end: 20230326
  17. CEFDINIR [Concomitant]
     Active Substance: CEFDINIR
     Indication: Infection
     Dosage: .3 G, UNK
     Dates: start: 20230326, end: 20230326
  18. POLYETHYLENE GLYCOLS [Concomitant]
     Active Substance: POLYETHYLENE GLYCOLS
     Indication: Defaecation disorder
     Dosage: 4000 POWDER 10G
     Dates: start: 20230326, end: 20230326
  19. PENICILLIN G SODIUM [Concomitant]
     Active Substance: PENICILLIN G SODIUM
     Indication: Skin test
     Dosage: 160 INTERNATIONAL UNIT
     Dates: start: 20230401, end: 20230401
  20. PENICILLIN G SODIUM [Concomitant]
     Active Substance: PENICILLIN G SODIUM
     Dosage: 160 INTERNATIONAL UNIT
     Dates: start: 20230401, end: 20230401
  21. AMPICILLIN [Concomitant]
     Active Substance: AMPICILLIN
     Indication: Infection
     Dosage: 10 G, UNK
     Dates: start: 20230401, end: 20230402
  22. SODIUM CHLORIDE [Concomitant]
     Active Substance: SODIUM CHLORIDE
     Indication: Product used for unknown indication
     Dosage: 250 ML, INJECTION 10% SODIUM CHLORIDE HYPERTONIC SALINE 20ML
     Dates: start: 20230402, end: 20230403
  23. POTASSIUM CHLORIDE [Concomitant]
     Active Substance: POTASSIUM CHLORIDE
     Indication: Electrolyte substitution therapy
     Dosage: 7.5 ML
     Dates: start: 20230402, end: 20230403
  24. DYPHYLLINE [Concomitant]
     Active Substance: DYPHYLLINE
     Indication: Asthma
     Dosage: .5 G, UNK
     Dates: start: 20230402, end: 20230403
  25. METHYLPREDNISOLONE [Concomitant]
     Active Substance: METHYLPREDNISOLONE
     Indication: Infection
     Dosage: 40 MG, UNK
     Dates: start: 20230402, end: 20230403
  26. NUTRITION 6 [Concomitant]
     Indication: Malnutrition
     Dosage: 600 ML
     Dates: start: 20230323
  27. ACETYLCYSTEINE [Concomitant]
     Active Substance: ACETYLCYSTEINE
     Indication: Inhalation therapy
     Dosage: 600 MG
  28. ACETYLCYSTEINE [Concomitant]
     Active Substance: ACETYLCYSTEINE
     Indication: Productive cough
  29. ATROVENT [Concomitant]
     Active Substance: IPRATROPIUM BROMIDE
     Indication: Tracheal dilatation
     Dosage: UNK
     Dates: start: 20230411, end: 20230423
  30. BUDESONIDE [Concomitant]
     Active Substance: BUDESONIDE
     Indication: Inhalation therapy
     Dosage: 2 ML
  31. BUDESONIDE [Concomitant]
     Active Substance: BUDESONIDE
     Indication: Tracheal dilatation
  32. PHOSPHOLIPID [Concomitant]
     Active Substance: PHOSPHOLIPID
     Indication: Product used for unknown indication
     Dosage: 1356 MG

REACTIONS (4)
  - Death [Fatal]
  - Hepatic function abnormal [Recovered/Resolved]
  - Hypoalbuminaemia [Not Recovered/Not Resolved]
  - Pyrexia [Unknown]

NARRATIVE: CASE EVENT DATE: 20230323
